APPROVED DRUG PRODUCT: ESOMEPRAZOLE SODIUM
Active Ingredient: ESOMEPRAZOLE SODIUM
Strength: EQ 40MG BASE/VIAL
Dosage Form/Route: INJECTABLE;INTRAVENOUS
Application: A215732 | Product #001 | TE Code: AP
Applicant: SLATE RUN PHARMACEUTICALS LLC
Approved: Feb 10, 2022 | RLD: No | RS: Yes | Type: RX